FAERS Safety Report 8337985-7 (Version None)
Quarter: 2012Q2

REPORT INFORMATION
  Report Type: 
  Country: None (occurrence: None)
  Receive Date: 20120504
  Receipt Date: 20120424
  Transmission Date: 20120825
  Serious: Yes (Hospitalization)
  Sender: FDA-Public Use
  Company Number: CA-JNJFOC-20120412211

PATIENT
  Sex: Female
  Weight: 71.22 kg

DRUGS (2)
  1. REMICADE [Suspect]
     Indication: ANKYLOSING SPONDYLITIS
     Route: 042
     Dates: end: 20111001
  2. REMICADE [Suspect]
     Route: 042

REACTIONS (5)
  - DEHYDRATION [None]
  - PNEUMONIA [None]
  - BACK PAIN [None]
  - PHARYNGITIS STREPTOCOCCAL [None]
  - SACRALISATION [None]
